FAERS Safety Report 4808606-2 (Version None)
Quarter: 2005Q4

REPORT INFORMATION
  Report Type: 
  Country: None (occurrence: None)
  Receive Date: 20051025
  Receipt Date: 20051020
  Transmission Date: 20060501
  Serious: Yes (Other)
  Sender: FDA-Public Use
  Company Number: DE-GLAXOSMITHKLINE-D0047772A

PATIENT
  Age: 62 Year
  Sex: Male

DRUGS (1)
  1. ZEFFIX [Suspect]
     Indication: HEPATITIS B
     Route: 065
     Dates: start: 20041001

REACTIONS (1)
  - THROMBOCYTOPENIA [None]
